FAERS Safety Report 5360789-4 (Version None)
Quarter: 2007Q2

REPORT INFORMATION
  Report Type: 
  Country: None (occurrence: None)
  Receive Date: 20070530
  Receipt Date: 20070131
  Transmission Date: 20071010
  Serious: No
  Sender: FDA-Public Use
  Company Number: 2007PV029336

PATIENT
  Age: 42 Year
  Sex: Female
  Weight: 94.3482 kg

DRUGS (3)
  1. BYETTA [Suspect]
     Indication: DIABETES MELLITUS NON-INSULIN-DEPENDENT
     Dosage: 5 MCG; BID; SC
     Route: 058
     Dates: start: 20061221
  2. LANTUS [Concomitant]
  3. LEVEMIR [Concomitant]

REACTIONS (5)
  - ABDOMINAL DISTENSION [None]
  - OCULAR ICTERUS [None]
  - PITTING OEDEMA [None]
  - PRURITUS [None]
  - WEIGHT INCREASED [None]
